FAERS Safety Report 6996498-5 (Version None)
Quarter: 2010Q3

REPORT INFORMATION
  Report Type: 
  Country: None (occurrence: None)
  Receive Date: 20100918
  Receipt Date: 20090518
  Transmission Date: 20110219
  Serious: No
  Sender: FDA-Public Use
  Company Number: US-WYE-H08399109

PATIENT
  Sex: Female
  Weight: 59.02 kg

DRUGS (9)
  1. ALAVERT [Suspect]
     Indication: RHINORRHOEA
     Route: 048
     Dates: start: 20090225, end: 20090225
  2. ALAVERT [Suspect]
     Indication: HEADACHE
     Route: 048
     Dates: start: 20090301, end: 20090301
  3. ALAVERT [Suspect]
     Indication: EYE PRURITUS
  4. ALAVERT [Suspect]
     Indication: LACRIMATION INCREASED
  5. ALAVERT [Suspect]
     Indication: SNEEZING
  6. ALAVERT [Suspect]
     Indication: THROAT IRRITATION
  7. PRAVASTATIN [Concomitant]
  8. ZETIA [Concomitant]
  9. SYNTHROID [Concomitant]

REACTIONS (8)
  - AGITATION [None]
  - ANXIETY [None]
  - CHEST DISCOMFORT [None]
  - CONDITION AGGRAVATED [None]
  - DRUG INEFFECTIVE [None]
  - NASAL CONGESTION [None]
  - NERVOUSNESS [None]
  - RHINORRHOEA [None]
